FAERS Safety Report 8131096-1 (Version None)
Quarter: 2012Q1

REPORT INFORMATION
  Report Type: 
  Country: None (occurrence: None)
  Receive Date: 20120209
  Receipt Date: 20120209
  Transmission Date: 20120608
  Serious: Yes (Hospitalization)
  Sender: FDA-Public Use
  Company Number: None

PATIENT
  Sex: Male

DRUGS (9)
  1. ALTACE [Concomitant]
  2. TRILIPIX [Concomitant]
  3. GLUCOPHAGE [Concomitant]
  4. PRADAXA [Suspect]
     Indication: ATRIAL FIBRILLATION
     Dosage: 150 MG BID ORAL  LESS THAN A YEAR
     Route: 048
  5. HUMULIN N [Concomitant]
  6. HYTRIN [Concomitant]
  7. LIPITOR [Concomitant]
  8. PRANDIN [Concomitant]
  9. COREG [Concomitant]

REACTIONS (4)
  - BLOOD GLUCOSE DECREASED [None]
  - FATIGUE [None]
  - FAECES DISCOLOURED [None]
  - ASTHENIA [None]
